FAERS Safety Report 6962717-4 (Version None)
Quarter: 2010Q3

REPORT INFORMATION
  Report Type: 
  Country: None (occurrence: None)
  Receive Date: 20100823
  Receipt Date: 20100714
  Transmission Date: 20110219
  Serious: Yes (Hospitalization)
  Sender: FDA-Public Use
  Company Number: 004188

PATIENT
  Sex: Male

DRUGS (2)
  1. CIMZIA [Suspect]
     Indication: CROHN'S DISEASE
     Dosage: (SUBCUTANEOUS), (UNSPECIFIED SUBCUTANEOUS)
     Route: 058
     Dates: start: 20091226
  2. CIMZIA [Suspect]
     Indication: CROHN'S DISEASE
     Dosage: (SUBCUTANEOUS), (UNSPECIFIED SUBCUTANEOUS)
     Route: 058
     Dates: start: 20100326

REACTIONS (4)
  - CLOSTRIDIAL INFECTION [None]
  - CROHN'S DISEASE [None]
  - DRUG INEFFECTIVE [None]
  - HERPES ZOSTER [None]
